FAERS Safety Report 16987733 (Version 3)
Quarter: 2022Q1

REPORT INFORMATION
  Report Type: Spontaneous
  Country: DE (occurrence: DE)
  Receive Date: 20191104
  Receipt Date: 20220207
  Transmission Date: 20220424
  Serious: Yes (Other)
  Sender: FDA-Public Use
  Company Number: DE-CADRBFARM-2019005089

PATIENT
  Age: 39 Year
  Sex: Female
  Weight: 54 kg

DRUGS (5)
  1. MIRTAZAPINE [Suspect]
     Active Substance: MIRTAZAPINE
     Indication: Sleep disorder
     Dosage: 1 MILLIGRAM, ONCE A DAY,2 WOCHEN; MITTE OKTOBER BIS ENDE OKTOBER 2019
     Route: 065
  2. MIRTAZAPINE [Suspect]
     Active Substance: MIRTAZAPINE
     Indication: Depression
     Dosage: 3.75 MILLIGRAM, ONCE A DAY,8 WOCHEN; ENDE MAI BIS ENDE JULI 2019
     Route: 048
     Dates: start: 201905, end: 201907
  3. MIRTAZAPINE [Suspect]
     Active Substance: MIRTAZAPINE
     Dosage: UNK
     Route: 048
     Dates: start: 201906, end: 201909
  4. MIRTAZAPINE [Suspect]
     Active Substance: MIRTAZAPINE
     Dosage: 2.3 MILLIGRAM, ONCE A DAY,8 WOCHEN; ANFANG AUGUST BIS ANFANG SEPTEMBER 2019
     Route: 065
     Dates: start: 201908, end: 201909
  5. MIRTAZAPINE [Suspect]
     Active Substance: MIRTAZAPINE
     Dosage: 1.8 MILLIGRAM, ONCE A DAY,6 WOCHEN; ANFANG SEPTEMBER BIS MITTE OKTOBER 2019
     Route: 065
     Dates: start: 201909, end: 201910

REACTIONS (9)
  - Drug withdrawal convulsions [Recovering/Resolving]
  - Suicidal ideation [Unknown]
  - Visual impairment [Unknown]
  - Restlessness [Unknown]
  - Headache [Unknown]
  - Anxiety [Unknown]
  - Affect lability [Unknown]
  - Depression [Recovered/Resolved]
  - Withdrawal syndrome [Recovering/Resolving]

NARRATIVE: CASE EVENT DATE: 20191001
